FAERS Safety Report 8562403-3 (Version None)
Quarter: 2012Q3

REPORT INFORMATION
  Report Type: 
  Country: None (occurrence: None)
  Receive Date: 20120802
  Receipt Date: 20120719
  Transmission Date: 20120928
  Serious: No
  Sender: FDA-Public Use
  Company Number: US-ASTRAZENECA-2011SE46351

PATIENT
  Age: 54 Year
  Sex: Male

DRUGS (3)
  1. THYROID PILL [Concomitant]
  2. NEXIUM [Suspect]
     Route: 048
  3. GENERICS [Concomitant]

REACTIONS (8)
  - GASTROOESOPHAGEAL REFLUX DISEASE [None]
  - MALAISE [None]
  - DRUG DOSE OMISSION [None]
  - DYSPNOEA [None]
  - ABDOMINAL DISCOMFORT [None]
  - CHOKING [None]
  - GOITRE [None]
  - OESOPHAGEAL DISORDER [None]
